FAERS Safety Report 24526145 (Version 1)
Quarter: 2024Q4

REPORT INFORMATION
  Report Type: Spontaneous
  Country: ZA (occurrence: ZA)
  Receive Date: 20241021
  Receipt Date: 20241021
  Transmission Date: 20250115
  Serious: Yes (Other)
  Sender: NOVO NORDISK
  Company Number: ZA-NOVOPROD-1297972

PATIENT
  Age: 55 Year
  Sex: Female

DRUGS (5)
  1. OZEMPIC [Suspect]
     Active Substance: SEMAGLUTIDE
     Indication: Insulin resistance
     Dosage: 0.25MG X 18 CLICKS FOR 1 MONTH
     Dates: start: 20240801
  2. OZEMPIC [Suspect]
     Active Substance: SEMAGLUTIDE
     Dosage: 0.5 MG X 36 CLICKS FOR THE 2ND MONTH
     Dates: end: 20240926
  3. FLUPENTIXOL DECANOATE [Concomitant]
     Active Substance: FLUPENTIXOL DECANOATE
     Indication: Product used for unknown indication
     Dosage: 40 MG X EVERY 3 WEEKS
  4. ARIPIPRAZOLE [Concomitant]
     Active Substance: ARIPIPRAZOLE
     Indication: Product used for unknown indication
     Dosage: 5 MG, QD
  5. MYLAN OXCARBAZEPINE [Concomitant]
     Indication: Product used for unknown indication
     Dosage: 300 MG, BID

REACTIONS (2)
  - Psychotic disorder [Unknown]
  - Off label use [Recovered/Resolved]

NARRATIVE: CASE EVENT DATE: 20240801
